FAERS Safety Report 11917362 (Version 2)
Quarter: 2016Q1

REPORT INFORMATION
  Report Type: Spontaneous
  Country: CN (occurrence: CN)
  Receive Date: 20160114
  Receipt Date: 20160308
  Transmission Date: 20160526
  Serious: Yes (Other)
  Sender: FDA-Public Use
  Company Number: CN-IMPAX LABORATORIES, INC-2016-IPXL-00002

PATIENT
  Age: 74 Year
  Sex: Female
  Weight: 53 kg

DRUGS (9)
  1. ESOMEPRAZOLE [Suspect]
     Active Substance: ESOMEPRAZOLE
     Indication: ANTACID THERAPY
     Dosage: 80 MG, 2 /DAY
     Route: 042
     Dates: start: 20141011, end: 201410
  2. LANSOPRAZOLE. [Suspect]
     Active Substance: LANSOPRAZOLE
     Dosage: 30 MG, 1 /DAY
     Route: 042
     Dates: start: 20141101, end: 201411
  3. LANSOPRAZOLE. [Suspect]
     Active Substance: LANSOPRAZOLE
     Indication: PROPHYLAXIS
     Dosage: 30 MG, DAILY
     Route: 042
     Dates: start: 20141005, end: 201410
  4. ESOMEPRAZOLE [Suspect]
     Active Substance: ESOMEPRAZOLE
     Dosage: 200 MG
     Route: 042
     Dates: start: 20141026, end: 20141028
  5. ESOMEPRAZOLE [Suspect]
     Active Substance: ESOMEPRAZOLE
     Dosage: 40 MG, 2 /DAY
     Route: 042
     Dates: start: 20141014, end: 20141015
  6. ESOMEPRAZOLE [Suspect]
     Active Substance: ESOMEPRAZOLE
     Dosage: 200 MG
     Route: 042
     Dates: start: 20141015, end: 20141017
  7. OMEPRAZOLE DELAYED RELEASE [Suspect]
     Active Substance: OMEPRAZOLE
     Indication: ANTACID THERAPY
     Dosage: 40 MG, 1 /DAY
     Route: 045
     Dates: start: 20141028, end: 20141101
  8. LANSOPRAZOLE. [Suspect]
     Active Substance: LANSOPRAZOLE
     Dosage: 30 MG, 2 /DAY
     Route: 042
     Dates: start: 201410, end: 20141011
  9. ESOMEPRAZOLE [Suspect]
     Active Substance: ESOMEPRAZOLE
     Dosage: 40 MG, 2 /DAY
     Route: 042
     Dates: start: 20141018, end: 20141026

REACTIONS (3)
  - Haemoptysis [Recovering/Resolving]
  - Dermatitis exfoliative [Recovering/Resolving]
  - Tracheal injury [Recovering/Resolving]

NARRATIVE: CASE EVENT DATE: 2014
